FAERS Safety Report 10515018 (Version 2)
Quarter: 2014Q4

REPORT INFORMATION
  Report Type: Spontaneous
  Country: GR (occurrence: GR)
  Receive Date: 20141013
  Receipt Date: 20141022
  Transmission Date: 20150528
  Serious: Yes (Death, Hospitalization)
  Sender: FDA-Public Use
  Company Number: PHHY2014GR132015

PATIENT
  Age: 42 Year
  Sex: Female

DRUGS (2)
  1. PHENYTOIN. [Suspect]
     Active Substance: PHENYTOIN
     Indication: SEIZURE
     Route: 065
  2. ALISKIREN [Suspect]
     Active Substance: ALISKIREN
     Indication: HYPERTENSION
     Route: 065

REACTIONS (14)
  - Rash maculo-papular [Recovered/Resolved]
  - Alanine aminotransferase increased [Unknown]
  - Cardio-respiratory arrest [Unknown]
  - Death [Fatal]
  - Hypoxic-ischaemic encephalopathy [Unknown]
  - Anuria [Unknown]
  - Acute kidney injury [Unknown]
  - Transaminases increased [Recovered/Resolved]
  - Aspartate aminotransferase increased [Recovered/Resolved]
  - Seizure [Unknown]
  - Hyperkalaemia [Unknown]
  - Drug reaction with eosinophilia and systemic symptoms [Unknown]
  - Eosinophilia [Recovered/Resolved]
  - Face oedema [Unknown]
